FAERS Safety Report 7325556-0 (Version None)
Quarter: 2011Q1

REPORT INFORMATION
  Report Type: 
  Country: None (occurrence: None)
  Receive Date: 20110302
  Receipt Date: 20110222
  Transmission Date: 20110831
  Serious: Yes (Hospitalization, Other)
  Sender: FDA-Public Use
  Company Number: RU-ASTRAZENECA-2010SE61332

PATIENT
  Age: 60 Year
  Sex: Female

DRUGS (5)
  1. BETALOC ZOK [Suspect]
     Indication: TACHYCARDIA
     Route: 048
     Dates: start: 20020101
  2. BETALOC ZOK [Suspect]
     Route: 048
     Dates: start: 20101001
  3. BETALOC ZOK [Suspect]
     Route: 048
     Dates: start: 20101001
  4. BETALOC ZOK [Suspect]
     Route: 048
  5. ARIFON RETARD [Concomitant]

REACTIONS (5)
  - BRONCHOSPASM [None]
  - BLOOD PRESSURE INCREASED [None]
  - FATIGUE [None]
  - DRUG INEFFECTIVE [None]
  - TACHYCARDIA [None]
